FAERS Safety Report 15296257 (Version 1)
Quarter: 2018Q4

REPORT INFORMATION
  Report Type: Spontaneous
  Country: US (occurrence: US)
  Receive Date: 20180820
  Receipt Date: 20180820
  Transmission Date: 20190204
  Serious: Yes (Hospitalization, Other)
  Sender: FDA-Public Use
  Company Number: US-ACCORD-070949

PATIENT
  Age: 54 Year
  Sex: Female

DRUGS (17)
  1. ATORVASTATIN/ATORVASTATIN CALCIUM [Suspect]
     Active Substance: ATORVASTATIN CALCIUM
     Indication: PRODUCT USED FOR UNKNOWN INDICATION
     Dosage: INITIALLY DOSE NOT CHANGED THEN STOPPED ON NINTH DAY
  2. PANTOPRAZOLE [Concomitant]
     Active Substance: PANTOPRAZOLE
  3. POTASSIUM CHLORIDE. [Concomitant]
     Active Substance: POTASSIUM CHLORIDE
  4. CYANOCOBALAMIN. [Concomitant]
     Active Substance: CYANOCOBALAMIN
  5. CALCIUM GLUCONATE. [Concomitant]
     Active Substance: CALCIUM GLUCONATE
  6. ERGOCALCIFEROL. [Concomitant]
     Active Substance: ERGOCALCIFEROL
  7. HEPARIN [Concomitant]
     Active Substance: HEPARIN SODIUM
  8. INSULIN [Concomitant]
     Active Substance: INSULIN NOS
  9. PROPOFOL. [Concomitant]
     Active Substance: PROPOFOL
  10. THIAMINE. [Concomitant]
     Active Substance: THIAMINE
  11. COLECALCIFEROL [Concomitant]
     Active Substance: CHOLECALCIFEROL
  12. LACTOBACILLUS ACIDOPHILUS [Concomitant]
     Active Substance: LACTOBACILLUS ACIDOPHILUS
  13. PARACETAMOL [Concomitant]
     Active Substance: ACETAMINOPHEN
  14. BISACODYL. [Concomitant]
     Active Substance: BISACODYL
  15. DOCUSATE/DOCUSATE CALCIUM/DOCUSATE POTASSIUM/DOCUSATE SODIUM [Concomitant]
  16. NICARDIPINE [Concomitant]
     Active Substance: NICARDIPINE
  17. MAGNESIUM SULFATE. [Concomitant]
     Active Substance: MAGNESIUM SULFATE

REACTIONS (1)
  - Macroglossia [Recovering/Resolving]
